FAERS Safety Report 18970843 (Version 1)
Quarter: 2021Q1

REPORT INFORMATION
  Report Type: Spontaneous
  Country: US (occurrence: US)
  Receive Date: 20210304
  Receipt Date: 20210304
  Transmission Date: 20210420
  Serious: No
  Sender: FDA-Public Use
  Company Number: US-AMGEN-USASP2021033577

PATIENT
  Sex: Female

DRUGS (1)
  1. KANJINTI [Suspect]
     Active Substance: TRASTUZUMAB-ANNS
     Indication: BREAST CANCER METASTATIC
     Dosage: 870 MILLIGRAM
     Route: 065

REACTIONS (3)
  - Dyspnoea [Unknown]
  - Muscle spasms [Unknown]
  - Oxygen saturation decreased [Unknown]
